FAERS Safety Report 24321193 (Version 1)
Quarter: 2024Q3

REPORT INFORMATION
  Report Type: Report from Study
  Country: US (occurrence: None)
  Receive Date: 20240916
  Receipt Date: 20240916
  Transmission Date: 20241017
  Serious: Yes (Other)
  Sender: ASTRAZENECA
  Company Number: 2024A205852

PATIENT
  Sex: Female

DRUGS (2)
  1. TRUQAP [Suspect]
     Active Substance: CAPIVASERTIB
     Indication: Breast cancer female
     Route: 048
     Dates: start: 20240831
  2. FULVASTRENT [Concomitant]

REACTIONS (5)
  - Spinal compression fracture [Unknown]
  - Blood glucose increased [Unknown]
  - Nausea [Unknown]
  - Taste disorder [Unknown]
  - Vomiting [Unknown]
